FAERS Safety Report 9400161 (Version 1)
Quarter: 2013Q2

REPORT INFORMATION
  Report Type: Spontaneous
  Country: GB (occurrence: None)
  Receive Date: 20130509
  Receipt Date: 20130509
  Transmission Date: 20140414
  Serious: Yes (Death, Hospitalization)
  Sender: FDA-Public Use
  Company Number: AUR-APL-2013-03655

PATIENT
  Age: 36 Year
  Sex: Female

DRUGS (3)
  1. CITALOPRAM (CITALOPRAM) [Suspect]
     Indication: DEPRESSION
     Route: 048
     Dates: end: 201208
  2. IBUPROFEN [Concomitant]
  3. ACETAMINOPHEN [Concomitant]

REACTIONS (23)
  - Malaise [None]
  - Lethargy [None]
  - Diarrhoea [None]
  - Hepatic steatosis [None]
  - Vomiting [None]
  - Confusional state [None]
  - Acute hepatic failure [None]
  - Sepsis [None]
  - Ascites [None]
  - Hypothermia [None]
  - Pulmonary congestion [None]
  - Pulmonary oedema [None]
  - Intra-abdominal haemorrhage [None]
  - Respiratory disorder [None]
  - Arteriosclerosis coronary artery [None]
  - Peritonitis bacterial [None]
  - Decreased appetite [None]
  - Coagulopathy [None]
  - Ceruloplasmin decreased [None]
  - Blood copper decreased [None]
  - Arteriosclerosis [None]
  - Hepatitis acute [None]
  - Circulatory collapse [None]
